FAERS Safety Report 5724608-6 (Version None)
Quarter: 2008Q2

REPORT INFORMATION
  Report Type: 
  Country: None (occurrence: None)
  Receive Date: 20080430
  Receipt Date: 20080430
  Transmission Date: 20081010
  Serious: Yes (Other)
  Sender: FDA-Public Use
  Company Number: None

PATIENT
  Age: 22 Year
  Sex: Female
  Weight: 72 kg

DRUGS (11)
  1. LINEZOLID [Suspect]
     Indication: SOFT TISSUE INFECTION
     Dosage: 600 MG PO TWICE DAILY / 400 MG
     Route: 048
     Dates: start: 20080228, end: 20080310
  2. LINEZOLID [Suspect]
     Indication: STAPHYLOCOCCAL SKIN INFECTION
     Dosage: 600 MG PO TWICE DAILY / 400 MG
     Route: 048
     Dates: start: 20080228, end: 20080310
  3. CETIRIZINE HCL [Concomitant]
  4. CLONIDINE [Concomitant]
  5. ENOXAPARIN SODIUM [Concomitant]
  6. FLONASE [Concomitant]
  7. HYDROXYZINE [Concomitant]
  8. CIDOFOVIR TOPICAL [Concomitant]
  9. LANSOPRAZOLE [Concomitant]
  10. TOPIRAMATE [Concomitant]
  11. VENLAFAXINE HCL [Concomitant]

REACTIONS (1)
  - PLATELET COUNT DECREASED [None]
